FAERS Safety Report 11491829 (Version 2)
Quarter: 2015Q3

REPORT INFORMATION
  Report Type: Report from Study
  Country: DE (occurrence: DE)
  Receive Date: 20150910
  Receipt Date: 20150914
  Transmission Date: 20151125
  Serious: Yes (Hospitalization)
  Sender: FDA-Public Use
  Company Number: DE-BAXALTA-2013BAX007975

PATIENT

DRUGS (14)
  1. ADVATE [Suspect]
     Active Substance: ANTIHEMOPHILIC FACTOR, HUMAN RECOMBINANT
     Dosage: 500 IU TWICE
     Dates: start: 20120512, end: 20120512
  2. ADVATE [Suspect]
     Active Substance: ANTIHEMOPHILIC FACTOR, HUMAN RECOMBINANT
     Dosage: UNK
     Dates: start: 20120513, end: 20120518
  3. ADVATE [Suspect]
     Active Substance: ANTIHEMOPHILIC FACTOR, HUMAN RECOMBINANT
     Dosage: UNK
     Route: 065
     Dates: start: 200905
  4. ADVATE [Suspect]
     Active Substance: ANTIHEMOPHILIC FACTOR, HUMAN RECOMBINANT
     Dosage: UNK
     Route: 065
     Dates: start: 200905
  5. ADVATE [Suspect]
     Active Substance: ANTIHEMOPHILIC FACTOR, HUMAN RECOMBINANT
     Dosage: 500 IU, 1X A DAY
     Route: 042
     Dates: start: 20120513, end: 20120518
  6. ADVATE [Suspect]
     Active Substance: ANTIHEMOPHILIC FACTOR, HUMAN RECOMBINANT
     Dosage: UNK
     Dates: start: 20120512, end: 20120512
  7. ADVATE [Suspect]
     Active Substance: ANTIHEMOPHILIC FACTOR, HUMAN RECOMBINANT
     Dosage: UNK
     Dates: start: 20120513, end: 20120518
  8. ADVATE [Suspect]
     Active Substance: ANTIHEMOPHILIC FACTOR, HUMAN RECOMBINANT
     Dosage: UNK
     Dates: start: 20120511, end: 20120511
  9. ADVATE [Suspect]
     Active Substance: ANTIHEMOPHILIC FACTOR, HUMAN RECOMBINANT
     Indication: FACTOR VIII DEFICIENCY
     Dosage: 500 IU, EVERY 2 DY
     Route: 042
     Dates: start: 20120101, end: 20121231
  10. ADVATE [Suspect]
     Active Substance: ANTIHEMOPHILIC FACTOR, HUMAN RECOMBINANT
     Dosage: 500 IU, 1X A DAY
     Route: 042
     Dates: start: 20120519, end: 20120521
  11. ADVATE [Suspect]
     Active Substance: ANTIHEMOPHILIC FACTOR, HUMAN RECOMBINANT
     Dosage: 1000 IU, ONCE
     Route: 042
     Dates: start: 20120820, end: 20120820
  12. ADVATE [Suspect]
     Active Substance: ANTIHEMOPHILIC FACTOR, HUMAN RECOMBINANT
     Dosage: UNK
     Route: 065
     Dates: start: 200905
  13. CYKLOKAPRON [Concomitant]
     Active Substance: TRANEXAMIC ACID
     Indication: PROCOAGULANT THERAPY
     Dosage: 200 MG, 3X A DAY
     Route: 048
     Dates: start: 20120511, end: 20120518
  14. ADVATE [Suspect]
     Active Substance: ANTIHEMOPHILIC FACTOR, HUMAN RECOMBINANT
     Indication: PROPHYLAXIS
     Dosage: 1500 IU, 1X A DAY
     Route: 042
     Dates: start: 20120511, end: 20120511

REACTIONS (2)
  - Adenoidal hypertrophy [Recovered/Resolved]
  - Tonsillar hypertrophy [Recovered/Resolved]

NARRATIVE: CASE EVENT DATE: 20120510
